FAERS Safety Report 7476867-X (Version None)
Quarter: 2011Q2

REPORT INFORMATION
  Report Type: 
  Country: None (occurrence: None)
  Receive Date: 20110512
  Receipt Date: 20071025
  Transmission Date: 20111010
  Serious: Yes (Death, Life-Threatening, Hospitalization, Other)
  Sender: FDA-Public Use
  Company Number: US-BAYER-200811941NA

PATIENT
  Age: 55 Year
  Sex: Female
  Weight: 56 kg

DRUGS (13)
  1. TRASYLOL [Suspect]
     Dosage: 50CC PER HOUR INFUSION
     Route: 042
     Dates: start: 20060927, end: 20060927
  2. LASIX [Concomitant]
     Dosage: 40 MG, QD
     Route: 048
  3. HYDROCHLOROTHIAZIDE [Concomitant]
     Dosage: 2.5 MG, QD
     Route: 048
  4. TRASYLOL [Suspect]
     Dosage: 200CC PUMP PRIME
     Route: 042
     Dates: start: 20060927
  5. MANNITOL [Concomitant]
     Dosage: UNK
     Dates: start: 20060927
  6. NEO-SYNEPHRINE [OXYMETAZOLINE HYDROCHLORIDE] [Concomitant]
     Dosage: UNK
     Route: 042
     Dates: start: 20060927
  7. TOPROL-XL [Concomitant]
     Dosage: 300 MG, QD
     Route: 048
  8. ANCEF [Concomitant]
     Dosage: 2 G, UNK
     Dates: start: 20060927
  9. ACETYLSALICYLIC ACID SRT [Concomitant]
     Dosage: 325 MG, QD
     Route: 048
  10. TRASYLOL [Suspect]
     Indication: CORONARY ARTERY BYPASS
     Dosage: 1 ML, TEST DOSE
     Route: 042
     Dates: start: 20060927
  11. TRASYLOL [Suspect]
     Dosage: 200 ML BOLUS
     Route: 042
     Dates: start: 20060927, end: 20060927
  12. LIPITOR [Concomitant]
     Dosage: 40 MG, QD
     Route: 048
  13. NORVASC [Concomitant]

REACTIONS (2)
  - INJURY [None]
  - RENAL FAILURE ACUTE [None]
